FAERS Safety Report 7073787-X (Version None)
Quarter: 2010Q4

REPORT INFORMATION
  Report Type: 
  Country: None (occurrence: None)
  Receive Date: 20101029
  Receipt Date: 20100914
  Transmission Date: 20110411
  Serious: No
  Sender: FDA-Public Use
  Company Number: A0876122A

PATIENT
  Age: 74 Year
  Sex: Male

DRUGS (9)
  1. ADVAIR DISKUS 100/50 [Suspect]
     Indication: ASTHMA
     Dosage: 1PUFF TWICE PER DAY
     Route: 055
     Dates: start: 20040801
  2. METOPROLOL [Concomitant]
  3. LIPITOR [Concomitant]
  4. ZYRTEC [Concomitant]
  5. ASPIRIN [Concomitant]
  6. FLOMAX [Concomitant]
  7. SYNTHROID [Concomitant]
  8. MULTI-VITAMIN [Concomitant]
  9. NIACIN [Concomitant]

REACTIONS (3)
  - COUGH [None]
  - DYSPNOEA [None]
  - PRODUCT QUALITY ISSUE [None]
